FAERS Safety Report 7428996-4 (Version None)
Quarter: 2011Q2

REPORT INFORMATION
  Report Type: 
  Country: None (occurrence: None)
  Receive Date: 20110412
  Receipt Date: 20110404
  Transmission Date: 20111010
  Serious: Yes (Death)
  Sender: FDA-Public Use
  Company Number: JHP201100091

PATIENT
  Age: 34 Year
  Sex: Female
  Weight: 70 kg

DRUGS (7)
  1. ENOXAPARIN SODIUM [Concomitant]
  2. NITROGLYCERIN [Concomitant]
  3. HEPARIN [Concomitant]
  4. PITOCIN [Suspect]
     Indication: PROPHYLAXIS
     Dosage: IN 5% DEXTROSE SOLUTION - RATE INCREASED 200 MU/MIN AFTER DELIVER AND PLACENTA REMOVAL, INTRAVEN
     Route: 042
  5. PITOCIN [Suspect]
     Indication: POSTPARTUM HAEMORRHAGE
     Dosage: IN 5% DEXTROSE SOLUTION - RATE INCREASED 200 MU/MIN AFTER DELIVER AND PLACENTA REMOVAL, INTRAVEN
     Route: 042
  6. PITOCIN [Suspect]
     Indication: INDUCED LABOUR
     Dosage: IN 5% DEXTROSE SOLUTION - RATE INCREASED 200 MU/MIN AFTER DELIVER AND PLACENTA REMOVAL, INTRAVEN
     Route: 042
  7. METOPROLOL (METOPROLOL) [Concomitant]

REACTIONS (7)
  - DRUG EXPOSURE DURING PREGNANCY [None]
  - BLOOD PRESSURE INCREASED [None]
  - VENTRICULAR TACHYCARDIA [None]
  - PULMONARY OEDEMA [None]
  - BLOOD PH DECREASED [None]
  - VENTRICULAR FIBRILLATION [None]
  - CARDIAC ARREST [None]
